FAERS Safety Report 11066538 (Version 2)
Quarter: 2015Q2

REPORT INFORMATION
  Report Type: Spontaneous
  Country: US (occurrence: US)
  Receive Date: 20150425
  Receipt Date: 20150525
  Transmission Date: 20150821
  Serious: No
  Sender: FDA-Public Use
  Company Number: US-JNJFOC-20131107977

PATIENT
  Age: 76 Year
  Sex: Female

DRUGS (3)
  1. REMICADE [Suspect]
     Active Substance: INFLIXIMAB
     Indication: RHEUMATOID ARTHRITIS
     Route: 042
  2. REMICADE [Suspect]
     Active Substance: INFLIXIMAB
     Indication: RHEUMATOID ARTHRITIS
     Route: 042
  3. REMICADE [Suspect]
     Active Substance: INFLIXIMAB
     Indication: RHEUMATOID ARTHRITIS
     Dosage: 2ND LOADING DOSE
     Route: 042

REACTIONS (8)
  - Peripheral swelling [Unknown]
  - Erythema [Unknown]
  - Back pain [Unknown]
  - Infusion related reaction [Unknown]
  - Nausea [Unknown]
  - Rash [Unknown]
  - Body temperature increased [Unknown]
  - Vomiting [Unknown]
